FAERS Safety Report 6135953-7 (Version None)
Quarter: 2009Q1

REPORT INFORMATION
  Report Type: 
  Country: None (occurrence: None)
  Receive Date: 20090329
  Receipt Date: 20090116
  Transmission Date: 20090719
  Serious: No
  Sender: FDA-Public Use
  Company Number: US-BAUSCH-2009BL000204

PATIENT
  Age: 84 Year
  Sex: Female
  Weight: 48 kg

DRUGS (5)
  1. ALAWAY [Suspect]
     Indication: EYE PRURITUS
     Route: 047
     Dates: start: 20090116, end: 20090116
  2. PRESERVISION LUTEIN SOFT GELS [Concomitant]
     Indication: VITAMIN SUPPLEMENTATION
     Route: 048
     Dates: start: 20080101
  3. SYNTHROID [Concomitant]
     Indication: THYROID DISORDER
     Route: 048
     Dates: start: 20070101
  4. PRAVASTATIN [Concomitant]
     Indication: BLOOD CHOLESTEROL INCREASED
     Route: 048
     Dates: start: 20070101
  5. VITAMIN E [Concomitant]
     Indication: VITAMIN SUPPLEMENTATION
     Route: 048
     Dates: start: 20080701

REACTIONS (1)
  - VISION BLURRED [None]
